FAERS Safety Report 7563323-3 (Version None)
Quarter: 2011Q2

REPORT INFORMATION
  Report Type: 
  Country: None (occurrence: None)
  Receive Date: 20110622
  Receipt Date: 20110620
  Transmission Date: 20111010
  Serious: Yes (Hospitalization)
  Sender: FDA-Public Use
  Company Number: A0899133A

PATIENT
  Sex: Female

DRUGS (1)
  1. ROSIGLITAZONE MALEATE [Suspect]
     Indication: DIABETES MELLITUS
     Route: 048

REACTIONS (7)
  - CARDIAC FAILURE CONGESTIVE [None]
  - CHEST PAIN [None]
  - MYOCARDIAL INFARCTION [None]
  - CAROTID ARTERY DISEASE [None]
  - CARDIAC HYPERTROPHY [None]
  - STENT PLACEMENT [None]
  - CARDIAC OPERATION [None]
